FAERS Safety Report 23854012 (Version 1)
Quarter: 2024Q2

REPORT INFORMATION
  Report Type: Spontaneous
  Country: ES (occurrence: None)
  Receive Date: 20240514
  Receipt Date: 20240514
  Transmission Date: 20240715
  Serious: Yes (Hospitalization)
  Sender: FDA-Public Use
  Company Number: ES-ROCHE-3562248

PATIENT
  Age: 4 Year
  Sex: Male

DRUGS (1)
  1. EVRYSDI [Suspect]
     Active Substance: RISDIPLAM
     Indication: Muscular dystrophy
     Dosage: DOSE OF 5.6/DAY
     Route: 048
     Dates: start: 202309

REACTIONS (3)
  - Diarrhoea [Unknown]
  - Dehydration [Unknown]
  - Metabolic acidosis [Unknown]
